FAERS Safety Report 5489224-2 (Version None)
Quarter: 2007Q4

REPORT INFORMATION
  Report Type: 
  Country: None (occurrence: None)
  Receive Date: 20071016
  Receipt Date: 20071003
  Transmission Date: 20080405
  Serious: Yes (Other)
  Sender: FDA-Public Use
  Company Number: T07-USA-05141-01

PATIENT
  Age: 66 Year
  Sex: Male
  Weight: 77.7012 kg

DRUGS (29)
  1. MEMANTINE HCL [Suspect]
     Indication: COGNITIVE DISORDER
     Dates: start: 20070615, end: 20070801
  2. MEMANTINE HCL [Suspect]
     Indication: DEMENTIA
     Dates: start: 20070615, end: 20070801
  3. MEMANTINE HCL [Suspect]
     Indication: PARKINSON'S DISEASE
     Dates: start: 20070615, end: 20070801
  4. MEMANTINE HCL [Suspect]
     Indication: COGNITIVE DISORDER
     Dates: start: 20070808, end: 20070815
  5. MEMANTINE HCL [Suspect]
     Indication: DEMENTIA
     Dates: start: 20070808, end: 20070815
  6. MEMANTINE HCL [Suspect]
     Indication: PARKINSON'S DISEASE
     Dates: start: 20070808, end: 20070815
  7. MEMANTINE HCL [Suspect]
     Indication: COGNITIVE DISORDER
     Dates: start: 20070825, end: 20070908
  8. MEMANTINE HCL [Suspect]
     Indication: DEMENTIA
     Dates: start: 20070825, end: 20070908
  9. MEMANTINE HCL [Suspect]
     Indication: PARKINSON'S DISEASE
     Dates: start: 20070825, end: 20070908
  10. SINEMET [Concomitant]
  11. ADVIL [Concomitant]
  12. ASPIRIN [Concomitant]
  13. PERI-COLACE [Concomitant]
  14. COENZYME Q10 [Concomitant]
  15. VITAMIN B-12 [Concomitant]
  16. VITAMIN B COMPLEX CAP [Concomitant]
  17. BRAHMI [Concomitant]
  18. TRIPHALA [Concomitant]
  19. AYURVEDIC FORMULA [Concomitant]
  20. VITAMIN E [Concomitant]
  21. COD LIVER OIL FORTIFIED TAB [Concomitant]
  22. AMRIT NECTAR [Concomitant]
  23. BLISSFUL JOY [Concomitant]
  24. MENTAL CLARITY [Concomitant]
  25. CALCIUM ABSORPTION [Concomitant]
  26. MIND FLEX [Concomitant]
  27. HERBAL DI-GEST [Concomitant]
  28. DIGEST TONE [Concomitant]
  29. ACETAMINOPHEN [Concomitant]

REACTIONS (9)
  - ANXIETY [None]
  - CONDITION AGGRAVATED [None]
  - DYSPRAXIA [None]
  - HALLUCINATION, VISUAL [None]
  - INITIAL INSOMNIA [None]
  - MIDDLE INSOMNIA [None]
  - PARANOIA [None]
  - PARKINSON'S DISEASE [None]
  - PROSTATITIS [None]
